FAERS Safety Report 21424156 (Version 1)
Quarter: 2022Q4

REPORT INFORMATION
  Report Type: Spontaneous
  Country: US (occurrence: US)
  Receive Date: 20221007
  Receipt Date: 20221007
  Transmission Date: 20230113
  Serious: No
  Sender: FDA-Public Use
  Company Number: US-JAZZ-2022-US-025444

PATIENT
  Age: 11 Year
  Sex: Male

DRUGS (2)
  1. RYLAZE [Suspect]
     Active Substance: ASPARAGINASE ERWINIA CHRYSANTHEMI (RECOMBINANT)-RYWN
     Indication: Product used for unknown indication
  2. ONCASPAR [Suspect]
     Active Substance: PEGASPARGASE
     Indication: Product used for unknown indication
     Dosage: UNK
     Route: 030

REACTIONS (2)
  - Contusion [Unknown]
  - Pain in extremity [Unknown]
